FAERS Safety Report 10579266 (Version 2)
Quarter: 2015Q1

REPORT INFORMATION
  Report Type: Spontaneous
  Country: US (occurrence: US)
  Receive Date: 20141112
  Receipt Date: 20150128
  Transmission Date: 20150720
  Serious: Yes (Death, Hospitalization, Other)
  Sender: FDA-Public Use
  Company Number: US-UCBSA-2014017520

PATIENT
  Age: 72 Year
  Sex: Female
  Weight: 62.6 kg

DRUGS (10)
  1. KEPPRA [Suspect]
     Active Substance: LEVETIRACETAM
     Indication: SEIZURE
     Dosage: 500 MG, 2X/DAY (BID)
     Route: 048
  2. PREDNISONE. [Concomitant]
     Active Substance: PREDNISONE
  3. KLOR-CON [Concomitant]
     Active Substance: POTASSIUM CHLORIDE
  4. DIOVAN [Concomitant]
     Active Substance: VALSARTAN
  5. OXYBUTYNIN [Concomitant]
     Active Substance: OXYBUTYNIN
  6. AMLODIPINE [Concomitant]
     Active Substance: AMLODIPINE BESYLATE
  7. PROMACTA [Suspect]
     Active Substance: ELTROMBOPAG OLAMINE
     Indication: IMMUNE THROMBOCYTOPENIC PURPURA
     Dosage: UNK
     Route: 048
     Dates: start: 20140217
  8. CRESTOR [Concomitant]
     Active Substance: ROSUVASTATIN CALCIUM
  9. CLONIDINE. [Concomitant]
     Active Substance: CLONIDINE
  10. ZOCOR [Concomitant]
     Active Substance: SIMVASTATIN
     Dosage: 20 MG, ONCE DAILY (QD)

REACTIONS (8)
  - Death [Fatal]
  - Generalised tonic-clonic seizure [Unknown]
  - Frequent bowel movements [Unknown]
  - Faecal volume increased [Unknown]
  - Drug dose omission [Unknown]
  - Pain [Unknown]
  - Thrombocytopenia [Recovering/Resolving]
  - Mental status changes [Recovered/Resolved]

NARRATIVE: CASE EVENT DATE: 2014
